FAERS Safety Report 10129246 (Version 1)
Quarter: 2014Q2

REPORT INFORMATION
  Report Type: Spontaneous
  Country: US (occurrence: US)
  Receive Date: 20140428
  Receipt Date: 20140428
  Transmission Date: 20141212
  Serious: No
  Sender: FDA-Public Use
  Company Number: US-ABBVIE-14P-163-1204750-00

PATIENT
  Age: 45 Year
  Sex: Male
  Weight: 90.8 kg

DRUGS (3)
  1. ANDROGEL [Suspect]
     Indication: BLOOD TESTOSTERONE DECREASED
     Route: 061
     Dates: start: 201212, end: 201303
  2. ANDROGEL [Suspect]
     Route: 061
     Dates: start: 201303, end: 201306
  3. ANDROGEL [Suspect]
     Route: 061
     Dates: start: 201306

REACTIONS (3)
  - Drug administered at inappropriate site [Not Recovered/Not Resolved]
  - Blood testosterone decreased [Not Recovered/Not Resolved]
  - Drug ineffective [Not Recovered/Not Resolved]
